FAERS Safety Report 4499650-6 (Version None)
Quarter: 2004Q4

REPORT INFORMATION
  Report Type: 
  Country: None (occurrence: None)
  Receive Date: 20041108
  Receipt Date: 20041026
  Transmission Date: 20050328
  Serious: Yes (Death, Other)
  Sender: FDA-Public Use
  Company Number: 2004083254

PATIENT
  Age: 85 Year
  Sex: Female

DRUGS (1)
  1. SULPERAZONE (CEFOPERAZONE, SULBACTAM) [Suspect]
     Indication: PNEUMONIA
     Dosage: INTRAVENOUS
     Route: 042
     Dates: end: 20041001

REACTIONS (1)
  - DEATH [None]
